FAERS Safety Report 15538290 (Version 1)
Quarter: 2018Q4

REPORT INFORMATION
  Report Type: Report from Study
  Country: US (occurrence: US)
  Receive Date: 20181022
  Receipt Date: 20181022
  Transmission Date: 20190205
  Serious: Yes (Hospitalization, Other)
  Sender: FDA-Public Use
  Company Number: US-MYLANLABS-2018M1078430

PATIENT
  Age: 16 Year
  Sex: Female
  Weight: 58.32 kg

DRUGS (11)
  1. DACTINOMYCIN [Suspect]
     Active Substance: DACTINOMYCIN
     Indication: ALVEOLAR RHABDOMYOSARCOMA
     Dosage: 0.05 MG/KG, CYCLE (ON DAY 1 OF CYCLES 1,3 , 5 AND 8)
     Route: 042
     Dates: start: 20180211
  2. TEMSIROLIMUS. [Suspect]
     Active Substance: TEMSIROLIMUS
     Dosage: UNK
     Dates: end: 20180920
  3. VINCRISTINE SULFATE. [Suspect]
     Active Substance: VINCRISTINE SULFATE
     Indication: ALVEOLAR RHABDOMYOSARCOMA
     Dosage: 1.5 MG/M2, CYCLE (ON DAYS 1, 8, AND 15 OF CYCLES 1-4)
     Route: 042
     Dates: start: 20180211
  4. CYCLOPHOSPHAMIDE. [Suspect]
     Active Substance: CYCLOPHOSPHAMIDE
     Dosage: 1992 MG, CYCLE (ON DAY 1 OF CYCLE 10)
     Route: 042
     Dates: start: 20180827, end: 20180827
  5. CYCLOPHOSPHAMIDE. [Suspect]
     Active Substance: CYCLOPHOSPHAMIDE
     Indication: ALVEOLAR RHABDOMYOSARCOMA
     Dosage: 1200 MG/M2, CYCLE (ON DAY 1 OF CYCLES 1,3,5 AND 8)
     Route: 042
     Dates: start: 20180211
  6. VINCRISTINE SULFATE. [Suspect]
     Active Substance: VINCRISTINE SULFATE
     Dosage: 1.5 MG/M2, CYCLE (DAY 1 OF CYCLE 5, DAY 1 AND 8 OF CYCLES 6 AND 7 AND 9, DAY 1,8,15 OF CYCLE)
     Route: 042
  7. DACTINOMYCIN [Suspect]
     Active Substance: DACTINOMYCIN
     Dosage: 2.5 MG, CYCLE (DAY 1 OF CYCLE 10)
     Route: 042
     Dates: start: 20180716, end: 20180827
  8. TEMSIROLIMUS. [Suspect]
     Active Substance: TEMSIROLIMUS
     Dosage: 24 MG, CYCLE  (ON DAYS 1, 8, AND 15 OF CYCLE 10)
     Route: 042
     Dates: start: 20180716, end: 20180827
  9. CAMPTOSAR [Suspect]
     Active Substance: IRINOTECAN HYDROCHLORIDE
     Indication: ALVEOLAR RHABDOMYOSARCOMA
     Dosage: 50 MG/M2, CYCLE (ON DAYS 1-5 OF CYCLES 2,4,6,7 AND 9)
     Route: 042
     Dates: start: 20180211
  10. TEMSIROLIMUS. [Suspect]
     Active Substance: TEMSIROLIMUS
     Indication: ALVEOLAR RHABDOMYOSARCOMA
     Dosage: 15 MG/M2, CYCLE (ON DAYS 1, 8,15 OF CYCLE 1-4, 8 AND 9)
     Route: 042
     Dates: start: 20180211
  11. VINCRISTINE SULFATE. [Suspect]
     Active Substance: VINCRISTINE SULFATE
     Dosage: 1 MG, CYCLE (DAY 1 OF CYCLE 10)
     Route: 042
     Dates: start: 20180716, end: 20180827

REACTIONS (4)
  - Stomatitis [Unknown]
  - Neutropenia [Unknown]
  - Platelet count decreased [Recovered/Resolved]
  - Enterocolitis [Not Recovered/Not Resolved]

NARRATIVE: CASE EVENT DATE: 20180904
